FAERS Safety Report 18945818 (Version 2)
Quarter: 2021Q1

REPORT INFORMATION
  Report Type: Spontaneous
  Country: US (occurrence: US)
  Receive Date: 20210226
  Receipt Date: 20210315
  Transmission Date: 20210420
  Serious: Yes (Disabling, Other)
  Sender: FDA-Public Use
  Company Number: US-ORGANON-2102USA002709

PATIENT
  Age: 47 Year
  Sex: Male
  Weight: 122.01 kg

DRUGS (4)
  1. ATORVASTATIN [Concomitant]
     Active Substance: ATORVASTATIN
     Indication: LIPIDS ABNORMAL
     Dosage: 1 TABLET, QD (AT BEDTIME)
     Route: 048
     Dates: start: 2015
  2. PROPECIA [Suspect]
     Active Substance: FINASTERIDE
     Indication: ALOPECIA
     Dosage: 1 MILLIGRAM (ONE TABLET), PER DAY (QD)
     Route: 048
     Dates: start: 201710, end: 20201201
  3. ASPIRIN 81 [Concomitant]
     Active Substance: ASPIRIN
     Dosage: 1 TABLET, QD
     Route: 048
  4. FENOFIBRATE. [Concomitant]
     Active Substance: FENOFIBRATE
     Indication: LIPIDS ABNORMAL
     Dosage: 1 TABLET, QD
     Route: 048
     Dates: start: 2015

REACTIONS (2)
  - Depression [Recovered/Resolved]
  - Suicidal ideation [Recovered/Resolved]

NARRATIVE: CASE EVENT DATE: 202001
